FAERS Safety Report 6176461-7 (Version None)
Quarter: 2009Q2

REPORT INFORMATION
  Report Type: 
  Country: None (occurrence: None)
  Receive Date: 20090501
  Receipt Date: 20080917
  Transmission Date: 20091009
  Serious: Yes (Hospitalization)
  Sender: FDA-Public Use
  Company Number: FR-ALEXION-A200800094

PATIENT

DRUGS (26)
  1. SOLIRIS [Suspect]
     Indication: PAROXYSMAL NOCTURNAL HAEMOGLOBINURIA
     Dosage: 600 MG, SINGLE
     Route: 042
     Dates: start: 20070507, end: 20070507
  2. SOLIRIS [Suspect]
     Dosage: 600 MG, SINGLE
     Route: 042
     Dates: start: 20070514, end: 20070514
  3. SOLIRIS [Suspect]
     Dosage: 600 MG, SINGLE
     Route: 042
     Dates: start: 20070521, end: 20070521
  4. SOLIRIS [Suspect]
     Dosage: 600 MG, SINGLE
     Route: 042
     Dates: start: 20070528, end: 20070528
  5. SOLIRIS [Suspect]
     Dosage: 900 MG, SINGLE
     Dates: start: 20070604, end: 20070604
  6. SOLIRIS [Suspect]
     Dosage: 900 MG, SINGLE
     Dates: start: 20070618, end: 20070618
  7. SOLIRIS [Suspect]
     Dosage: 900 MG, SINGLE
     Dates: start: 20070702, end: 20070702
  8. SOLIRIS [Suspect]
     Dosage: 900 MG, SINGLE
     Dates: start: 20070716, end: 20070716
  9. SOLIRIS [Suspect]
     Dosage: 900 MG, SINGLE
     Dates: start: 20070730, end: 20070730
  10. SOLIRIS [Suspect]
     Dosage: 900 MG, SINGLE
     Dates: start: 20070813, end: 20070813
  11. SOLIRIS [Suspect]
     Dosage: 900 MG, SINGLE
     Dates: start: 20070827, end: 20070827
  12. SOLIRIS [Suspect]
     Dosage: 900 MG, SINGLE
     Dates: start: 20070910, end: 20070910
  13. SOLIRIS [Suspect]
     Dosage: 900 MG, SINGLE
     Dates: start: 20070924, end: 20070924
  14. SOLIRIS [Suspect]
     Dosage: 900 MG, SINGLE
     Dates: start: 20071008, end: 20071008
  15. SOLIRIS [Suspect]
     Dosage: 900 MG, SINGLE
     Dates: start: 20071022, end: 20071022
  16. SOLIRIS [Suspect]
     Dosage: 900 MG, SINGLE
     Dates: start: 20071105, end: 20071105
  17. SOLIRIS [Suspect]
     Dosage: 900 MG, SINGLE
     Dates: start: 20071129, end: 20071129
  18. SOLIRIS [Suspect]
     Dosage: 900 MG, SINGLE
     Dates: start: 20071203, end: 20071203
  19. SOLIRIS [Suspect]
     Dosage: 900 MG, SINGLE
     Dates: start: 20071217, end: 20071217
  20. SOLIRIS [Suspect]
     Dosage: UNK, UNK
     Dates: start: 20071231, end: 20071231
  21. LOVENOX [Concomitant]
     Dates: start: 20080220
  22. CYCLOSPORINE [Concomitant]
     Indication: APLASTIC ANAEMIA
     Dates: start: 20060529
  23. STEROIDS [Concomitant]
     Indication: APLASTIC ANAEMIA
     Dates: start: 20060516
  24. COUMADIN [Concomitant]
     Indication: THROMBOSIS
     Dates: start: 20070404
  25. VENTOLIN [Concomitant]
     Indication: ASTHMA
  26. ORACILLIN /00001802/ [Concomitant]
     Indication: PROPHYLAXIS
     Dates: start: 20070522

REACTIONS (2)
  - ANAEMIA [None]
  - HAEMOLYSIS [None]
